FAERS Safety Report 25044697 (Version 1)
Quarter: 2025Q1

REPORT INFORMATION
  Report Type: Report from Study
  Country: CO (occurrence: CO)
  Receive Date: 20250306
  Receipt Date: 20250306
  Transmission Date: 20250408
  Serious: Yes (Other)
  Sender: NOVO NORDISK
  Company Number: CO-NOVOPROD-1382703

PATIENT
  Age: 61 Year
  Sex: Female
  Weight: 56 kg

DRUGS (3)
  1. ASPIRIN [Concomitant]
     Active Substance: ASPIRIN
     Indication: Product used for unknown indication
     Route: 048
  2. NOVORAPID [Suspect]
     Active Substance: INSULIN ASPART
     Dosage: 65 IU, QD
     Route: 058
  3. NOVORAPID [Suspect]
     Active Substance: INSULIN ASPART
     Indication: Type 2 diabetes mellitus
     Dosage: 60 IU, QD
     Route: 058

REACTIONS (5)
  - Retinopathy [Unknown]
  - Vision blurred [Unknown]
  - Condition aggravated [Unknown]
  - Glaucoma [Unknown]
  - Eyelid ptosis [Unknown]
